FAERS Safety Report 8882518 (Version 1)
Quarter: 2012Q4

REPORT INFORMATION
  Report Type: Report from Study
  Country: CA (occurrence: CA)
  Receive Date: 20121105
  Receipt Date: 20121105
  Transmission Date: 20130627
  Serious: Yes (Other)
  Sender: FDA-Public Use
  Company Number: CA-JNJFOC-20121014317

PATIENT
  Sex: Female
  Weight: 80 kg

DRUGS (10)
  1. REMICADE [Suspect]
     Indication: CROHN^S DISEASE
     Route: 042
     Dates: start: 20081203
  2. OMEGA-3 [Concomitant]
     Route: 065
  3. CALCIUM MAGNESIUM [Concomitant]
     Dosage: 10/100 IU
     Route: 065
  4. VIT D [Concomitant]
     Dosage: 350/175mg
     Route: 065
  5. SALOFALK [Concomitant]
     Route: 065
  6. FOLIC ACID [Concomitant]
     Route: 065
  7. BUPROPION [Concomitant]
     Route: 065
  8. SERTRALINE [Concomitant]
     Route: 065
  9. MEGA-VITA [Concomitant]
     Route: 065
  10. VITAMIN B15 [Concomitant]
     Dosage: 250mcg
     Route: 065

REACTIONS (1)
  - Rectal haemorrhage [Recovering/Resolving]
